FAERS Safety Report 20908399 (Version 4)
Quarter: 2022Q3

REPORT INFORMATION
  Report Type: Spontaneous
  Country: US (occurrence: US)
  Receive Date: 20220603
  Receipt Date: 20220928
  Transmission Date: 20221026
  Serious: Yes (Other)
  Sender: FDA-Public Use
  Company Number: US-GLENMARK PHARMACEUTICALS-2022GMK072696

PATIENT

DRUGS (1)
  1. ZONISAMIDE [Suspect]
     Active Substance: ZONISAMIDE
     Indication: Product used for unknown indication
     Dosage: UNK
     Route: 065

REACTIONS (9)
  - Cerebrovascular accident [Unknown]
  - Pseudostroke [Unknown]
  - Seizure [Unknown]
  - Migraine [Unknown]
  - Recalled product administered [Unknown]
  - Memory impairment [Unknown]
  - Speech disorder [Unknown]
  - Impaired driving ability [Unknown]
  - Drug ineffective [Unknown]
